FAERS Safety Report 11400313 (Version 1)
Quarter: 2015Q3

REPORT INFORMATION
  Report Type: Spontaneous
  Country: DE (occurrence: DE)
  Receive Date: 20150820
  Receipt Date: 20150820
  Transmission Date: 20151125
  Serious: Yes (Other)
  Sender: FDA-Public Use
  Company Number: DE-ALLERGAN-1516041US

PATIENT
  Age: 79 Year
  Sex: Male

DRUGS (2)
  1. OZURDEX [Suspect]
     Active Substance: DEXAMETHASONE
     Indication: MACULAR OEDEMA
  2. OZURDEX [Suspect]
     Active Substance: DEXAMETHASONE
     Indication: CHORIORETINITIS
     Dosage: 0.7 MG, SINGLE
     Route: 031
     Dates: start: 20150427, end: 20150513

REACTIONS (2)
  - Device dislocation [Recovered/Resolved with Sequelae]
  - Corneal decompensation [Recovered/Resolved with Sequelae]
